FAERS Safety Report 7463576-6 (Version None)
Quarter: 2011Q2

REPORT INFORMATION
  Report Type: 
  Country: None (occurrence: None)
  Receive Date: 20110506
  Receipt Date: 20110504
  Transmission Date: 20111010
  Serious: Yes (Other)
  Sender: FDA-Public Use
  Company Number: US-PFIZER INC-2011096718

PATIENT
  Sex: Female
  Weight: 71.66 kg

DRUGS (8)
  1. LORTAB [Concomitant]
     Indication: FIBROMYALGIA
     Dosage: 10 MG, AS NEEDED
     Route: 048
  2. TRIAMTERENE [Concomitant]
     Indication: DIURETIC THERAPY
     Dosage: 3.75 MG, 1X/DAY
     Route: 048
     Dates: start: 20030101
  3. NEURONTIN [Suspect]
     Indication: FIBROMYALGIA
     Dosage: UNK
     Route: 048
  4. NEURONTIN [Suspect]
     Indication: DIABETIC NEUROPATHY
  5. LYRICA [Suspect]
     Indication: DIABETIC NEUROPATHY
  6. LORTAB [Concomitant]
     Indication: DIABETIC NEUROPATHY
  7. LYRICA [Suspect]
     Indication: FIBROMYALGIA
     Dosage: 150 MG, 3X/DAY
     Route: 048
     Dates: start: 20100101
  8. PAROXETINE [Concomitant]
     Indication: PANIC DISORDER
     Dosage: 30 MG, 1X/DAY
     Route: 048
     Dates: start: 19980101

REACTIONS (2)
  - TOOTH DISORDER [None]
  - HEPATIC ENZYME INCREASED [None]
